FAERS Safety Report 19953492 (Version 2)
Quarter: 2021Q4

REPORT INFORMATION
  Report Type: Spontaneous
  Country: ES (occurrence: ES)
  Receive Date: 20211013
  Receipt Date: 20211020
  Transmission Date: 20220303
  Serious: Yes (Other)
  Sender: FDA-Public Use
  Company Number: ES-EUSA PHARMA (UK) LIMITED-2021ES000589

PATIENT
  Sex: Female

DRUGS (22)
  1. SYLVANT [Suspect]
     Active Substance: SILTUXIMAB
     Indication: Castleman^s disease
     Dosage: CYCLE 1, 11 MG/KG, EVERY 3 WEEKS
     Route: 042
     Dates: start: 201706
  2. SYLVANT [Suspect]
     Active Substance: SILTUXIMAB
     Dosage: CYCLE 2, 11 MG/KG, EVERY 3 WEEKS
     Route: 042
  3. SYLVANT [Suspect]
     Active Substance: SILTUXIMAB
     Dosage: CYCLE 3, 11 MG/KG, EVERY 3 WEEKS
     Route: 042
  4. SYLVANT [Suspect]
     Active Substance: SILTUXIMAB
     Dosage: CYCLE 4, 11 MG/KG, EVERY 3 WEEKS
     Route: 042
  5. SYLVANT [Suspect]
     Active Substance: SILTUXIMAB
     Dosage: CYCLE 5, 11 MG/KG, EVERY 3 WEEKS
     Route: 042
  6. SYLVANT [Suspect]
     Active Substance: SILTUXIMAB
     Dosage: CYCLE 6, 11 MG/KG, EVERY 3 WEEKS
     Route: 042
  7. SYLVANT [Suspect]
     Active Substance: SILTUXIMAB
     Dosage: CYCLE 7, 11 MG/KG, EVERY 3 WEEKS
     Route: 042
  8. SYLVANT [Suspect]
     Active Substance: SILTUXIMAB
     Dosage: CYCLE 8, 11 MG/KG, EVERY 3 WEEKS
     Route: 042
  9. SYLVANT [Suspect]
     Active Substance: SILTUXIMAB
     Dosage: CYCLE 9, 11 MG/KG, EVERY 3 WEEKS
     Route: 042
  10. SYLVANT [Suspect]
     Active Substance: SILTUXIMAB
     Dosage: CYCLE 10, 11 MG/KG, EVERY 3 WEEKS
     Route: 042
  11. SYLVANT [Suspect]
     Active Substance: SILTUXIMAB
     Dosage: CYCLE 11, 11 MG/KG, EVERY 3 WEEKS
     Route: 042
  12. SYLVANT [Suspect]
     Active Substance: SILTUXIMAB
     Dosage: CYCLE 12, 11 MG/KG, EVERY 3 WEEKS
     Route: 042
  13. SYLVANT [Suspect]
     Active Substance: SILTUXIMAB
     Dosage: CYCLE 13, 11 MG/KG, EVERY 3 WEEKS
     Route: 042
  14. SYLVANT [Suspect]
     Active Substance: SILTUXIMAB
     Dosage: CYCLE 14, 11 MG/KG, EVERY 3 WEEKS
     Route: 042
  15. SYLVANT [Suspect]
     Active Substance: SILTUXIMAB
     Dosage: CYCLE 15, 11 MG/KG, EVERY 3 WEEKS
     Route: 042
  16. SYLVANT [Suspect]
     Active Substance: SILTUXIMAB
     Dosage: CYCLE 16, 11 MG/KG, EVERY 3 WEEKS
     Route: 042
  17. SYLVANT [Suspect]
     Active Substance: SILTUXIMAB
     Dosage: CYCLE 17, 11 MG/KG, EVERY 3 WEEKS
     Route: 042
  18. SYLVANT [Suspect]
     Active Substance: SILTUXIMAB
     Dosage: CYCLE 18: 11 MG/KG SILTUXIMAB EVERY 3 WEEKS SWITCHED TO11MG/KG SILTUXIMAB EVERY 6 WEEKS
     Route: 042
  19. SYLVANT [Suspect]
     Active Substance: SILTUXIMAB
     Dosage: CYCLE 19: 11 MG/KG SILTUXIMAB EVERY 3 WEEKS SWITCHED TO11MG/KG SILTUXIMAB EVERY 6 WEEKS
     Route: 042
  20. SYLVANT [Suspect]
     Active Substance: SILTUXIMAB
     Dosage: CYCLE 20: 11 MG/KG SILTUXIMAB EVERY 3 WEEKS SWITCHED TO11MG/KG SILTUXIMAB EVERY 6 WEEKS
     Route: 042
  21. SYLVANT [Suspect]
     Active Substance: SILTUXIMAB
     Dosage: CYCLE 21: 11 MG/KG SILTUXIMAB EVERY 3 WEEKS SWITCHED TO11MG/KG SILTUXIMAB EVERY 6 WEEKS
     Route: 042
  22. SYLVANT [Suspect]
     Active Substance: SILTUXIMAB
     Dosage: CYCLE 22: 11 MG/KG SILTUXIMAB EVERY 3 WEEKS SWITCHED TO11MG/KG SILTUXIMAB EVERY 6 WEEKS
     Route: 042

REACTIONS (2)
  - Cellulitis [Not Recovered/Not Resolved]
  - Off label use [Unknown]
